FAERS Safety Report 4636867-1 (Version None)
Quarter: 2005Q2

REPORT INFORMATION
  Report Type: 
  Country: None (occurrence: None)
  Receive Date: 20050414
  Receipt Date: 20050405
  Transmission Date: 20051028
  Serious: Yes (Hospitalization, Other)
  Sender: FDA-Public Use
  Company Number: 2005-01147

PATIENT
  Age: 49 Year
  Sex: Male

DRUGS (1)
  1. IBUPROFEN [Suspect]
     Indication: PAIN
     Dosage: 6000 MG OVER THREE DAYS, ORAL
     Route: 048

REACTIONS (3)
  - DRUG ABUSER [None]
  - HYPOKALAEMIA [None]
  - OVERDOSE [None]
